FAERS Safety Report 15244459 (Version 2)
Quarter: 2018Q3

REPORT INFORMATION
  Report Type: Spontaneous
  Country: JP (occurrence: JP)
  Receive Date: 20180806
  Receipt Date: 20180905
  Transmission Date: 20181010
  Serious: Yes (Other)
  Sender: FDA-Public Use
  Company Number: JP-JNJFOC-20180804961

PATIENT
  Age: 91 Year
  Sex: Female

DRUGS (6)
  1. TRAMADOL HYDROCHLORIDE AND ACETAMINOPHEN [Suspect]
     Active Substance: ACETAMINOPHEN\TRAMADOL HYDROCHLORIDE
     Indication: PAIN
     Route: 048
     Dates: start: 20170404, end: 20170524
  2. LOXONIN [Suspect]
     Active Substance: LOXOPROFEN SODIUM
     Indication: PRODUCT USED FOR UNKNOWN INDICATION
     Route: 065
  3. NEXIUM [Concomitant]
     Active Substance: ESOMEPRAZOLE MAGNESIUM
     Route: 048
  4. AMLODIPINE BESILATE [Concomitant]
     Active Substance: AMLODIPINE BESYLATE
     Route: 048
  5. VIVIANT [Concomitant]
     Active Substance: BAZEDOXIFENE
     Route: 048
  6. VALSARTAN. [Concomitant]
     Active Substance: VALSARTAN
     Route: 048

REACTIONS (2)
  - Haematochezia [Recovering/Resolving]
  - Large intestinal ulcer [Recovering/Resolving]

NARRATIVE: CASE EVENT DATE: 20170524
